FAERS Safety Report 14568865 (Version 1)
Quarter: 2018Q1

REPORT INFORMATION
  Report Type: Spontaneous
  Country: BR (occurrence: BR)
  Receive Date: 20180223
  Receipt Date: 20180223
  Transmission Date: 20180509
  Serious: Yes (Other)
  Sender: FDA-Public Use
  Company Number: BR-MYLANLABS-2018M1012354

PATIENT
  Age: 65 Year
  Sex: Male

DRUGS (4)
  1. PRAMIPEXOLE. [Interacting]
     Active Substance: PRAMIPEXOLE
     Indication: PARKINSON^S DISEASE
     Dosage: 1 MG/DAY; DOSE INCREASED TO 3 MG/DAY
     Route: 065
  2. PRAMIPEXOLE. [Interacting]
     Active Substance: PRAMIPEXOLE
     Dosage: 3 MG/DAY; LATER REDUCED TO 1.5 MG/DAY
     Route: 065
  3. CARBIDOPA/LEVODOPA [Interacting]
     Active Substance: CARBIDOPA\LEVODOPA
     Indication: PARKINSON^S DISEASE
     Dosage: 25/100 MG THREE TIMES DAILY
     Route: 065
  4. SELEGILINE [Suspect]
     Active Substance: SELEGILINE
     Indication: PARKINSON^S DISEASE
     Dosage: 5MG THREE TIMES DAILY
     Route: 065

REACTIONS (5)
  - Drug interaction [Recovered/Resolved]
  - Skin abrasion [None]
  - Formication [None]
  - Delusional disorder, unspecified type [Recovered/Resolved]
  - Dry skin [None]
